FAERS Safety Report 6617041-6 (Version None)
Quarter: 2010Q1

REPORT INFORMATION
  Report Type: 
  Country: None (occurrence: None)
  Receive Date: 20100306
  Receipt Date: 20100115
  Transmission Date: 20100710
  Serious: Yes (Hospitalization)
  Sender: FDA-Public Use
  Company Number: JP-JNJFOC-20091104093

PATIENT
  Sex: Female

DRUGS (8)
  1. LEVOFLOXACIN [Suspect]
     Indication: NASOPHARYNGITIS
     Route: 048
  2. LEVOFLOXACIN [Suspect]
     Indication: PHARYNGITIS
     Route: 048
  3. DIHYDROCODEINE PHOSPHATE [Suspect]
     Indication: NASOPHARYNGITIS
     Route: 048
  4. MARZULENE [Suspect]
     Indication: NASOPHARYNGITIS
     Route: 048
  5. AZUNOL [Suspect]
     Indication: NASOPHARYNGITIS
     Route: 048
  6. NIPOLAZIN [Concomitant]
     Indication: NASOPHARYNGITIS
     Route: 048
  7. TRANSAMIN [Concomitant]
     Indication: NASOPHARYNGITIS
     Route: 048
  8. LOXONIN [Concomitant]
     Indication: NASOPHARYNGITIS
     Route: 048

REACTIONS (2)
  - ANAPHYLACTIC REACTION [None]
  - BLOOD PRESSURE INCREASED [None]
